FAERS Safety Report 6571000-0 (Version None)
Quarter: 2010Q1

REPORT INFORMATION
  Report Type: 
  Country: None (occurrence: None)
  Receive Date: 20100203
  Receipt Date: 20100203
  Transmission Date: 20100710
  Serious: Yes (Hospitalization)
  Sender: FDA-Public Use
  Company Number: None

PATIENT
  Age: 56 Year
  Sex: Male
  Weight: 72.3 kg

DRUGS (1)
  1. DOCETAXEL [Suspect]
     Dosage: 141MG/285MLS ONE TIME ONLY IV DRIP
     Route: 041
     Dates: start: 20100128, end: 20100128

REACTIONS (5)
  - INFUSION RELATED REACTION [None]
  - LOSS OF CONSCIOUSNESS [None]
  - POSTURING [None]
  - PRESYNCOPE [None]
  - UNRESPONSIVE TO STIMULI [None]
